FAERS Safety Report 8538995-7 (Version None)
Quarter: 2012Q3

REPORT INFORMATION
  Report Type: 
  Country: None (occurrence: None)
  Receive Date: 20120726
  Receipt Date: 20120723
  Transmission Date: 20120928
  Serious: Yes (Disabling, Other)
  Sender: FDA-Public Use
  Company Number: PHHY2012IT044416

PATIENT
  Sex: Female

DRUGS (5)
  1. CANDESARTAN CILEXETIL AND HYDROCHLOROTHIAZIDE [Concomitant]
  2. SIMVASTATIN [Concomitant]
  3. ZOMETA [Suspect]
     Indication: UTERINE CANCER
     Dosage: UNK
     Dates: start: 20030901, end: 20051130
  4. BONIVA [Suspect]
     Indication: OSTEOPOROSIS
     Dosage: 1 DF, QMO
     Route: 048
     Dates: start: 20060101, end: 20120521
  5. FUROSEMIDE [Concomitant]

REACTIONS (1)
  - OSTEONECROSIS OF JAW [None]
